FAERS Safety Report 13217411 (Version 1)
Quarter: 2017Q1

REPORT INFORMATION
  Report Type: Other
  Country: US (occurrence: US)
  Receive Date: 20170210
  Receipt Date: 20170210
  Transmission Date: 20170428
  Serious: No
  Sender: FDA-Public Use
  Company Number: US-ACORDA-ACO_121440_2016

PATIENT
  Age: 65 Year
  Sex: Female

DRUGS (4)
  1. AMANTADINE HCL [Concomitant]
     Active Substance: AMANTADINE HYDROCHLORIDE
     Indication: PRODUCT USED FOR UNKNOWN INDICATION
     Dosage: UNK
     Route: 065
  2. AMPYRA [Suspect]
     Active Substance: DALFAMPRIDINE
     Indication: MULTIPLE SCLEROSIS
     Dosage: 10 MG, BID
     Route: 048
  3. PROZAC [Concomitant]
     Active Substance: FLUOXETINE HYDROCHLORIDE
     Indication: PRODUCT USED FOR UNKNOWN INDICATION
     Dosage: UNK
     Route: 065
  4. MIRAPEX [Concomitant]
     Active Substance: PRAMIPEXOLE DIHYDROCHLORIDE
     Indication: PRODUCT USED FOR UNKNOWN INDICATION
     Dosage: UNK
     Route: 065

REACTIONS (13)
  - Chest injury [Unknown]
  - Fatigue [Unknown]
  - Drug ineffective [Unknown]
  - Joint injury [Unknown]
  - Gait disturbance [Unknown]
  - Arthritis [Unknown]
  - Hypoaesthesia [Unknown]
  - Depressed mood [Unknown]
  - Fall [Unknown]
  - Movement disorder [Unknown]
  - Condition aggravated [Unknown]
  - Asthenia [Unknown]
  - Myalgia [Unknown]
